FAERS Safety Report 6867316-0 (Version None)
Quarter: 2010Q3

REPORT INFORMATION
  Report Type: 
  Country: None (occurrence: None)
  Receive Date: 20100722
  Receipt Date: 20100712
  Transmission Date: 20110219
  Serious: Yes (Hospitalization)
  Sender: FDA-Public Use
  Company Number: JP-MERCK-1006USA02317

PATIENT
  Age: 88 Year
  Sex: Female

DRUGS (10)
  1. HYZAAR [Suspect]
     Route: 048
     Dates: start: 20100115, end: 20100601
  2. BEZATOL [Suspect]
     Route: 048
     Dates: start: 20090301, end: 20100101
  3. BEZATOL [Suspect]
     Route: 048
     Dates: start: 20100301
  4. ATELEC [Concomitant]
     Route: 048
  5. VESICARE [Concomitant]
     Route: 048
  6. ASPIRIN [Concomitant]
     Route: 048
  7. ETOLAC (ETODOLAC) [Concomitant]
     Route: 048
  8. PLATIBIT [Concomitant]
     Route: 048
  9. VANARL N [Concomitant]
     Route: 048
  10. ALUSA [Concomitant]
     Route: 048

REACTIONS (3)
  - BLOOD CREATININE INCREASED [None]
  - BLOOD UREA INCREASED [None]
  - RHABDOMYOLYSIS [None]
